FAERS Safety Report 9988125 (Version 2)
Quarter: 2014Q1

REPORT INFORMATION
  Report Type: Spontaneous
  Country: US (occurrence: US)
  Receive Date: 20140308
  Receipt Date: 20140308
  Transmission Date: 20141002
  Serious: Yes (Disabling)
  Sender: FDA-Public Use
  Company Number: US-GE HEALTHCARE MEDICAL DIAGNOSTICS-OSCN-PR-0908S-0387

PATIENT
  Age: 65 Year
  Sex: Male

DRUGS (8)
  1. OMNISCAN [Suspect]
     Indication: RENAL TRANSPLANT
     Route: 065
     Dates: start: 20060410, end: 20060410
  2. MAGNEVIST [Suspect]
     Indication: HYPERTENSION
     Route: 042
     Dates: start: 20010307, end: 20010307
  3. MAGNEVIST [Suspect]
     Indication: RENAL ARTERY STENOSIS
     Route: 065
     Dates: start: 20030409, end: 20030409
  4. MAGNEVIST [Suspect]
     Indication: MUSCULAR WEAKNESS
     Route: 042
     Dates: start: 20031217, end: 20031217
  5. MAGNEVIST [Suspect]
     Indication: INTERMITTENT CLAUDICATION
     Route: 065
     Dates: start: 20050107, end: 20050107
  6. NEURONTIN [Concomitant]
     Dates: end: 20060327
  7. LYRICA [Concomitant]
     Dates: start: 20060327
  8. PLAVIX [Concomitant]

REACTIONS (1)
  - Nephrogenic systemic fibrosis [Not Recovered/Not Resolved]
